FAERS Safety Report 4695151-0 (Version None)
Quarter: 2005Q2

REPORT INFORMATION
  Report Type: 
  Country: None (occurrence: None)
  Receive Date: 20050614
  Receipt Date: 20050128
  Transmission Date: 20051028
  Serious: No
  Sender: FDA-Public Use
  Company Number: USA050189362

PATIENT
  Age: 31 Year
  Sex: Male

DRUGS (5)
  1. CIALIS [Suspect]
     Dosage: 20 MG
     Dates: start: 20050125
  2. LOPRESSOR [Concomitant]
  3. HYDROCHLOROTHIAZIDE [Concomitant]
  4. TUMS (CALCIUM CARBONATE) [Concomitant]
  5. NEXIUM [Concomitant]

REACTIONS (1)
  - DYSPEPSIA [None]
